FAERS Safety Report 9354144 (Version 2)
Quarter: 2013Q3

REPORT INFORMATION
  Report Type: Spontaneous
  Country: US (occurrence: US)
  Receive Date: 20130618
  Receipt Date: 20130715
  Transmission Date: 20140515
  Serious: No
  Sender: FDA-Public Use
  Company Number: US-TEVA-411332USA

PATIENT
  Sex: Male

DRUGS (1)
  1. QVAR [Suspect]
     Dates: start: 2003

REACTIONS (2)
  - Drug ineffective [Unknown]
  - Product taste abnormal [Unknown]
